FAERS Safety Report 10162463 (Version 1)
Quarter: 2014Q2

REPORT INFORMATION
  Report Type: Report from Study
  Country: TR (occurrence: TR)
  Receive Date: 20140509
  Receipt Date: 20140509
  Transmission Date: 20141212
  Serious: Yes (Hospitalization, Other)
  Sender: FDA-Public Use
  Company Number: TR-US-EMD SERONO, INC.-7288715

PATIENT
  Sex: Male
  Weight: 90 kg

DRUGS (5)
  1. REBIF [Suspect]
     Indication: MULTIPLE SCLEROSIS
     Dates: start: 201301
  2. LIORESAL [Concomitant]
     Indication: NEURALGIA
  3. DEPAKIN [Concomitant]
     Indication: MUSCLE CONTRACTIONS INVOLUNTARY
  4. PAROL [Concomitant]
     Indication: PYREXIA
  5. PAROL [Concomitant]
     Indication: ANALGESIC THERAPY

REACTIONS (2)
  - Pleurisy [Not Recovered/Not Resolved]
  - Dysphagia [Not Recovered/Not Resolved]
